FAERS Safety Report 19490267 (Version 1)
Quarter: 2021Q3

REPORT INFORMATION
  Report Type: Report from Study
  Country: FR (occurrence: FR)
  Receive Date: 20210705
  Receipt Date: 20210705
  Transmission Date: 20211014
  Serious: Yes (Death, Other)
  Sender: FDA-Public Use
  Company Number: FR-ROCHE-2861494

PATIENT
  Age: 66 Year
  Sex: Male

DRUGS (7)
  1. TOCILIZUMAB. [Suspect]
     Active Substance: TOCILIZUMAB
     Dosage: DOSE :? 20 MG/ML
     Route: 042
     Dates: start: 20200408
  2. TOCILIZUMAB. [Suspect]
     Active Substance: TOCILIZUMAB
     Indication: COVID-19
     Dosage: DOSE :? 20 MG/ML
     Route: 042
     Dates: start: 20200406
  3. MEROPENEM. [Suspect]
     Active Substance: MEROPENEM
     Indication: COVID-19
     Route: 065
     Dates: start: 20200430
  4. ENOXAPARIN SODIUM. [Suspect]
     Active Substance: ENOXAPARIN SODIUM
     Indication: COVID-19
     Route: 065
     Dates: start: 20200405
  5. NEURONTIN [Suspect]
     Active Substance: GABAPENTIN
     Indication: COVID-19
     Route: 065
  6. PROPOFOL. [Suspect]
     Active Substance: PROPOFOL
     Indication: COVID-19
     Route: 065
     Dates: start: 20200403
  7. AMIKACINE [Suspect]
     Active Substance: AMIKACIN
     Indication: COVID-19
     Route: 065
     Dates: start: 20200430

REACTIONS (16)
  - Hypovolaemic shock [Not Recovered/Not Resolved]
  - Anaemia [Not Recovered/Not Resolved]
  - Adrenal insufficiency [Not Recovered/Not Resolved]
  - Enterococcal infection [Recovering/Resolving]
  - Pleural effusion [Fatal]
  - Gamma-glutamyltransferase increased [Unknown]
  - Acute kidney injury [Not Recovered/Not Resolved]
  - Pulmonary embolism [Not Recovered/Not Resolved]
  - Mucormycosis [Not Recovered/Not Resolved]
  - Achromobacter infection [Fatal]
  - Citrobacter infection [Not Recovered/Not Resolved]
  - Oesophagitis [Not Recovered/Not Resolved]
  - Heparin-induced thrombocytopenia [Recovered/Resolved]
  - Septic shock [Fatal]
  - Hyperleukocytosis [Not Recovered/Not Resolved]
  - Pneumonia bacterial [Fatal]

NARRATIVE: CASE EVENT DATE: 20200414
